FAERS Safety Report 7048127-2 (Version None)
Quarter: 2010Q4

REPORT INFORMATION
  Report Type: 
  Country: None (occurrence: None)
  Receive Date: 20101015
  Receipt Date: 20101012
  Transmission Date: 20110411
  Serious: Yes (Hospitalization, Other)
  Sender: FDA-Public Use
  Company Number: CHPA2010US16013

PATIENT
  Age: 65 Year
  Sex: Female
  Weight: 74.83 kg

DRUGS (1)
  1. KERI ADVANCED(NCH) [Suspect]
     Indication: DRY SKIN
     Dosage: UNK , UNK
     Route: 061

REACTIONS (2)
  - IMMOBILE [None]
  - SPINAL OPERATION [None]
